FAERS Safety Report 13978283 (Version 1)
Quarter: 2017Q3

REPORT INFORMATION
  Report Type: Spontaneous
  Country: GB (occurrence: GB)
  Receive Date: 20170915
  Receipt Date: 20170915
  Transmission Date: 20171128
  Serious: Yes (Other)
  Sender: FDA-Public Use
  Company Number: PHFR2017GB007582

PATIENT
  Age: 38 Year
  Sex: Female
  Weight: 64.5 kg

DRUGS (1)
  1. BUPRENORPHINE. [Suspect]
     Active Substance: BUPRENORPHINE
     Indication: PRODUCT USED FOR UNKNOWN INDICATION
     Route: 065
     Dates: end: 201706

REACTIONS (3)
  - Hyperglycaemia [Unknown]
  - 17 ketosteroids urine abnormal [Recovered/Resolved]
  - Drug withdrawal syndrome [Unknown]
